FAERS Safety Report 25534997 (Version 1)
Quarter: 2025Q3

REPORT INFORMATION
  Report Type: Other
  Country: CN (occurrence: CN)
  Receive Date: 20250709
  Receipt Date: 20250709
  Transmission Date: 20251021
  Serious: Yes (Hospitalization)
  Sender: INCYTE
  Company Number: CN-002147023-NVSC2025CN104845

PATIENT
  Age: 36 Year

DRUGS (1)
  1. RUXOLITINIB [Suspect]
     Active Substance: RUXOLITINIB
     Indication: Graft versus host disease
     Dosage: 5 MG, BID

REACTIONS (11)
  - Asthenia [Unknown]
  - COVID-19 [Unknown]
  - Cough [Unknown]
  - Cytomegalovirus infection [Unknown]
  - Klebsiella infection [Unknown]
  - Productive cough [Unknown]
  - Bronchiectasis [Unknown]
  - Pneumonitis [Unknown]
  - Prothrombin time abnormal [Not Recovered/Not Resolved]
  - Rhinorrhoea [Unknown]
  - Sputum purulent [Unknown]
